FAERS Safety Report 6770453-2 (Version None)
Quarter: 2010Q2

REPORT INFORMATION
  Report Type: 
  Country: None (occurrence: None)
  Receive Date: 20100615
  Receipt Date: 20100603
  Transmission Date: 20101027
  Serious: Yes (Hospitalization, Other)
  Sender: FDA-Public Use
  Company Number: US-PFIZER INC-2010070229

PATIENT
  Age: 63 Year
  Sex: Female
  Weight: 54.422 kg

DRUGS (9)
  1. LYRICA [Suspect]
     Dosage: 25 MG, 1X/DAY
     Route: 048
  2. MILNACIPRAN HYDROCHLORIDE [Suspect]
     Indication: FIBROMYALGIA
     Dosage: 50 MG, 2X/DAY
     Route: 048
     Dates: start: 20090501, end: 20100101
  3. MILNACIPRAN HYDROCHLORIDE [Suspect]
     Dosage: 50MG AM; 25 MG PM
     Route: 048
     Dates: start: 20100101, end: 20100101
  4. MILNACIPRAN HYDROCHLORIDE [Suspect]
     Dosage: 25 MG, 2X/DAY
     Route: 048
     Dates: start: 20100101, end: 20100201
  5. MILNACIPRAN HYDROCHLORIDE [Suspect]
     Dosage: 25 MG, QOD
     Route: 048
     Dates: start: 20100201, end: 20100210
  6. PLAQUENIL [Concomitant]
     Indication: SYSTEMIC LUPUS ERYTHEMATOSUS
     Dosage: UNK
     Dates: start: 20040101
  7. WARFARIN [Concomitant]
     Dosage: UNK
     Dates: start: 20000101
  8. METOPROLOL [Concomitant]
     Indication: HYPERTENSION
     Dosage: 10 MG, 1X/DAY
     Route: 048
  9. METOPROLOL [Concomitant]
     Dosage: 20 MG, 1X/DAY
     Route: 048

REACTIONS (9)
  - BLOOD PRESSURE INCREASED [None]
  - CHEST DISCOMFORT [None]
  - CHEST PAIN [None]
  - DIZZINESS [None]
  - DYSPHAGIA [None]
  - HEART RATE IRREGULAR [None]
  - HYPERHIDROSIS [None]
  - NAUSEA [None]
  - SEROTONIN SYNDROME [None]
